FAERS Safety Report 9093255 (Version 1)
Quarter: 2013Q1

REPORT INFORMATION
  Report Type: Spontaneous
  Country: US (occurrence: US)
  Receive Date: 20130201
  Receipt Date: 20130201
  Transmission Date: 20140127
  Serious: Yes (Hospitalization, Other)
  Sender: FDA-Public Use
  Company Number: PHEH2013US002740

PATIENT
  Sex: Female

DRUGS (4)
  1. GILENYA [Suspect]
     Dosage: 0.5 MG, DAILY
     Route: 048
     Dates: end: 201206
  2. TYSABRI [Suspect]
     Dosage: UNK
     Dates: start: 201208
  3. RITALIN [Concomitant]
     Indication: FATIGUE
  4. ANTIEPILEPTICS [Concomitant]
     Indication: CONVULSION

REACTIONS (2)
  - Multiple sclerosis relapse [Unknown]
  - Central nervous system lesion [Unknown]
